FAERS Safety Report 22063474 (Version 1)
Quarter: 2023Q1

REPORT INFORMATION
  Report Type: Report from Study
  Country: TW (occurrence: TW)
  Receive Date: 20230306
  Receipt Date: 20230306
  Transmission Date: 20230418
  Serious: Yes (Hospitalization)
  Sender: FDA-Public Use
  Company Number: TW-ABBVIE-4326571

PATIENT
  Age: 40 Year
  Sex: Male
  Weight: 88 kg

DRUGS (1)
  1. HUMIRA [Suspect]
     Active Substance: ADALIMUMAB
     Indication: Psoriatic arthropathy
     Route: 058
     Dates: start: 20170911

REACTIONS (1)
  - Jaw cyst [Recovering/Resolving]

NARRATIVE: CASE EVENT DATE: 20230223
